FAERS Safety Report 6329373-X (Version None)
Quarter: 2009Q3

REPORT INFORMATION
  Report Type: 
  Country: None (occurrence: None)
  Receive Date: 20090824
  Receipt Date: 20090824
  Transmission Date: 20100115
  Serious: Yes (Other)
  Sender: FDA-Public Use
  Company Number: None

PATIENT
  Age: 57 Year
  Sex: Male
  Weight: 136.0791 kg

DRUGS (1)
  1. CIPROFLOXACIN 500MG TEVA PHARMACEUTICALS/ KAI [Suspect]
     Indication: URINARY TRACT INFECTION
     Dosage: 500MG 2 PER DAY PO
     Route: 048
     Dates: start: 20090814, end: 20090823

REACTIONS (5)
  - ABDOMINAL DISTENSION [None]
  - ABDOMINAL RIGIDITY [None]
  - DYSPNOEA EXERTIONAL [None]
  - FATIGUE [None]
  - INSOMNIA [None]
